FAERS Safety Report 9218599 (Version 1)
Quarter: 2013Q1

REPORT INFORMATION
  Report Type: Spontaneous
  Country: US (occurrence: None)
  Receive Date: 20120827
  Receipt Date: 20120827
  Transmission Date: 20140127
  Serious: Yes (Hospitalization, Other)
  Sender: FDA-Public Use
  Company Number: 353637

PATIENT
  Age: 56 Year
  Sex: Male
  Weight: 86.2 kg

DRUGS (6)
  1. VICTOZA (LIRAGLUTIDE) SOLUTION FOR INJECTION, 6MG/ML [Suspect]
     Indication: TYPE 2 DIABETES MELLITUS
     Dosage: UNKNOWN, SUBCUTANEOUS
     Route: 058
     Dates: start: 201101, end: 201103
  2. METFORMIN (METFORMIN) [Concomitant]
  3. SIMVASTATIN (SIMVASTATIN) [Concomitant]
  4. METOPROLOL (METOPROLOL) [Concomitant]
  5. PROZAC (FLUOXETINE HYDROCHLORIDE) [Concomitant]
  6. ATIVAN (LORAZEPAM) [Concomitant]

REACTIONS (2)
  - Pancreatitis [None]
  - Hypersensitivity [None]
